FAERS Safety Report 11935282 (Version 1)
Quarter: 2016Q1

REPORT INFORMATION
  Report Type: Spontaneous
  Country: US (occurrence: US)
  Receive Date: 20160121
  Receipt Date: 20160121
  Transmission Date: 20160526
  Serious: Yes (Death, Hospitalization)
  Sender: FDA-Public Use
  Company Number: US-SA-2016SA012080

PATIENT
  Age: 68 Year
  Sex: Male

DRUGS (4)
  1. CLOPIDOGREL BISULFATE. [Suspect]
     Active Substance: CLOPIDOGREL BISULFATE
     Indication: ANTIPLATELET THERAPY
     Route: 065
  2. CLOPIDOGREL BISULFATE. [Suspect]
     Active Substance: CLOPIDOGREL BISULFATE
     Indication: ANTIPLATELET THERAPY
     Dosage: LOADING DOSE
     Route: 065
  3. ASPIRIN. [Concomitant]
     Active Substance: ASPIRIN
  4. INTEGRILIN [Concomitant]
     Active Substance: EPTIFIBATIDE
     Dosage: DRIP

REACTIONS (6)
  - Cardiac arrest [Fatal]
  - Pancreatic necrosis [Fatal]
  - Bradycardia [Fatal]
  - Abdominal pain [Fatal]
  - Pancreatitis acute [Fatal]
  - Multiple organ dysfunction syndrome [Fatal]
